FAERS Safety Report 10621295 (Version 1)
Quarter: 2014Q4

REPORT INFORMATION
  Report Type: Spontaneous
  Country: BR (occurrence: BR)
  Receive Date: 20141203
  Receipt Date: 20141203
  Transmission Date: 20150529
  Serious: Yes (Other)
  Sender: FDA-Public Use
  Company Number: BR-ROCHE-1499418

PATIENT
  Sex: Male
  Weight: 80 kg

DRUGS (2)
  1. RIVOTRIL [Suspect]
     Active Substance: CLONAZEPAM
     Indication: SEDATION
     Route: 065
     Dates: start: 20141123
  2. ROHYPNOL [Suspect]
     Active Substance: FLUNITRAZEPAM
     Indication: SEDATION
     Route: 065

REACTIONS (4)
  - Cardiac disorder [Not Recovered/Not Resolved]
  - Sleep disorder [Not Recovered/Not Resolved]
  - Prostate cancer recurrent [Unknown]
  - Body height decreased [Unknown]
